FAERS Safety Report 5470937-3 (Version None)
Quarter: 2007Q3

REPORT INFORMATION
  Report Type: 
  Country: None (occurrence: None)
  Receive Date: 20070928
  Receipt Date: 20070920
  Transmission Date: 20080115
  Serious: No
  Sender: FDA-Public Use
  Company Number: JP-MERCK-0709USA01572

PATIENT
  Age: 31 Year
  Sex: Male
  Weight: 55 kg

DRUGS (2)
  1. PROPECIA [Suspect]
     Indication: MALE PATTERN BALDNESS
     Route: 048
     Dates: start: 20070828, end: 20070828
  2. PROPECIA [Suspect]
     Route: 048
     Dates: start: 20070910, end: 20070910

REACTIONS (2)
  - NAUSEA [None]
  - PYREXIA [None]
